FAERS Safety Report 6396701-9 (Version None)
Quarter: 2009Q4

REPORT INFORMATION
  Report Type: 
  Country: None (occurrence: None)
  Receive Date: 20091012
  Receipt Date: 20090930
  Transmission Date: 20100525
  Serious: Yes (Hospitalization)
  Sender: FDA-Public Use
  Company Number: JP-PFIZER INC-2008073556

PATIENT
  Age: 44 Year

DRUGS (1)
  1. AZULFIDINE [Suspect]
     Dosage: 500 MG, 2X/DAY
     Dates: start: 20080531, end: 20080620

REACTIONS (1)
  - DRUG RASH WITH EOSINOPHILIA AND SYSTEMIC SYMPTOMS [None]
